FAERS Safety Report 6311904-7 (Version None)
Quarter: 2009Q3

REPORT INFORMATION
  Report Type: 
  Country: None (occurrence: None)
  Receive Date: 20090817
  Receipt Date: 20090812
  Transmission Date: 20100115
  Serious: Yes (Hospitalization)
  Sender: FDA-Public Use
  Company Number: FR-BRISTOL-MYERS SQUIBB COMPANY-14699482

PATIENT
  Age: 25 Year
  Sex: Male

DRUGS (4)
  1. ABILIFY [Suspect]
     Indication: SCHIZOPHRENIA
     Dosage: INITIATED AT 10MG PER DAY 10 DAYS AGO AND THE DAILY DOSE WAS INCREASED TO 20MG 4 DAYS AGO.
     Route: 048
     Dates: start: 20090626, end: 20090710
  2. RISPERDAL [Concomitant]
     Indication: SCHIZOPHRENIA
     Dosage: RISPERDAL CONSTA LP
     Route: 030
  3. TERCIAN [Concomitant]
     Route: 048
  4. SERESTA [Concomitant]
     Route: 048

REACTIONS (3)
  - ANXIETY [None]
  - HALLUCINATION [None]
  - SUICIDE ATTEMPT [None]
